FAERS Safety Report 18480870 (Version 1)
Quarter: 2020Q4

REPORT INFORMATION
  Report Type: Spontaneous
  Country: US (occurrence: US)
  Receive Date: 20201109
  Receipt Date: 20201109
  Transmission Date: 20210114
  Serious: No
  Sender: FDA-Public Use
  Company Number: None

PATIENT
  Age: 58 Day
  Sex: Female

DRUGS (1)
  1. XPOVIO [Suspect]
     Active Substance: SELINEXOR
     Indication: PLASMA CELL MYELOMA
     Route: 048
     Dates: start: 20201102

REACTIONS (7)
  - Refusal of treatment by patient [None]
  - Nausea [None]
  - Asthenia [None]
  - Dizziness [None]
  - Hypophagia [None]
  - Decreased appetite [None]
  - Chest pain [None]
